FAERS Safety Report 21446146 (Version 7)
Quarter: 2025Q4

REPORT INFORMATION
  Report Type: Report from Study
  Country: TW (occurrence: TW)
  Receive Date: 20221012
  Receipt Date: 20251224
  Transmission Date: 20260118
  Serious: Yes (Hospitalization, Other)
  Sender: TAKEDA
  Company Number: TW-TAKEDA-2022TUS028777

PATIENT
  Age: 27 Year
  Sex: Male

DRUGS (5)
  1. RURIOCTOCOG ALFA PEGOL [Suspect]
     Active Substance: RURIOCTOCOG ALFA PEGOL
     Indication: Factor VIII deficiency
     Dosage: 3500 INTERNATIONAL UNIT, BID
     Dates: start: 20220413
  2. RURIOCTOCOG ALFA PEGOL [Suspect]
     Active Substance: RURIOCTOCOG ALFA PEGOL
     Indication: Haemophilia
     Dosage: 3500 INTERNATIONAL UNIT, Q2WEEKS
  3. RURIOCTOCOG ALFA PEGOL [Suspect]
     Active Substance: RURIOCTOCOG ALFA PEGOL
     Dosage: 3500 INTERNATIONAL UNIT
  4. RURIOCTOCOG ALFA PEGOL [Suspect]
     Active Substance: RURIOCTOCOG ALFA PEGOL
     Dosage: 3500 INTERNATIONAL UNIT, 2/WEEK
  5. MODERNA COVID-19 VACCINE [Suspect]
     Active Substance: ELASOMERAN
     Indication: Product used for unknown indication
     Dosage: UNK

REACTIONS (10)
  - Leukoplakia oral [Not Recovered/Not Resolved]
  - Abdominal pain [Recovered/Resolved]
  - Spontaneous haemorrhage [Recovered/Resolved]
  - Haemarthrosis [Recovered/Resolved]
  - Pyrexia [Recovered/Resolved]
  - Poor quality sleep [Recovered/Resolved]
  - Off label use [Not Recovered/Not Resolved]
  - Chest pain [Recovered/Resolved]
  - Inappropriate schedule of product administration [Unknown]
  - COVID-19 [Recovered/Resolved]

NARRATIVE: CASE EVENT DATE: 20220429
